FAERS Safety Report 8779821 (Version 1)
Quarter: 2012Q4

REPORT INFORMATION
  Report Type: Spontaneous
  Country: DK (occurrence: None)
  Receive Date: 20120828
  Receipt Date: 20120828
  Transmission Date: 20130627
  Serious: Yes (Hospitalization)
  Sender: FDA-Public Use
  Company Number: 2012MA010483

PATIENT
  Age: 64 Year
  Sex: Male

DRUGS (9)
  1. CARBOPLATIN [Suspect]
     Indication: ADENOCARCINOMA OF LUNG
     Route: 042
     Dates: start: 20120712
  2. GEMCITABINE HYDROCHLORIDE [Suspect]
     Indication: ADENOCARCINOMA OF LUNG
     Route: 042
     Dates: start: 20120712
  3. MORPHINE [Concomitant]
  4. FRAGMIN [Concomitant]
  5. TACHIDOL [Concomitant]
  6. ORAMORPH [Concomitant]
  7. MEDROL [Concomitant]
  8. CLENIL [Concomitant]
  9. OXIVENT [Concomitant]

REACTIONS (2)
  - Hepatitis acute [None]
  - Pancreatic leak [None]
